FAERS Safety Report 23519754 (Version 3)
Quarter: 2024Q2

REPORT INFORMATION
  Report Type: Spontaneous
  Country: US (occurrence: US)
  Receive Date: 20240213
  Receipt Date: 20240403
  Transmission Date: 20240716
  Serious: No
  Sender: FDA-Public Use
  Company Number: US-SANDOZ-SDZ2024US013645

PATIENT
  Sex: Female

DRUGS (1)
  1. PREDNISOLONE ACETATE [Suspect]
     Active Substance: PREDNISOLONE ACETATE
     Indication: Product used for unknown indication
     Dosage: (1 % 5ML LDP US) FOUR TIMES A DAY
     Route: 065

REACTIONS (3)
  - Application site discomfort [Unknown]
  - Poor quality product administered [Unknown]
  - Liquid product physical issue [Unknown]
